FAERS Safety Report 18347864 (Version 1)
Quarter: 2020Q4

REPORT INFORMATION
  Report Type: Report from Study
  Country: US (occurrence: US)
  Receive Date: 20201006
  Receipt Date: 20201006
  Transmission Date: 20210114
  Serious: No
  Sender: FDA-Public Use
  Company Number: NVSC2020US267175

PATIENT
  Sex: Female

DRUGS (1)
  1. ENTRESTO [Suspect]
     Active Substance: SACUBITRIL\VALSARTAN
     Indication: CARDIAC FAILURE
     Dosage: 1 DF, BID
     Route: 048
     Dates: start: 202009

REACTIONS (7)
  - Abdominal discomfort [Unknown]
  - Asthenia [Unknown]
  - Dizziness [Unknown]
  - Head discomfort [Unknown]
  - Incorrect dose administered [Unknown]
  - Faeces discoloured [Unknown]
  - Nervousness [Unknown]
